FAERS Safety Report 4958282-3 (Version None)
Quarter: 2006Q1

REPORT INFORMATION
  Report Type: 
  Country: None (occurrence: None)
  Receive Date: 20060330
  Receipt Date: 20060303
  Transmission Date: 20060701
  Serious: Yes (Hospitalization)
  Sender: FDA-Public Use
  Company Number: IT-AVENTIS-200611322EU

PATIENT
  Age: 85 Year
  Sex: Female

DRUGS (3)
  1. CLEXANE [Suspect]
     Indication: THROMBOSIS PROPHYLAXIS
     Route: 058
     Dates: start: 20060213, end: 20060219
  2. ENALAPRIL MALEATE [Concomitant]
     Indication: DRUG USE FOR UNKNOWN INDICATION
  3. LANOXIN [Concomitant]
     Indication: DRUG USE FOR UNKNOWN INDICATION
     Route: 048

REACTIONS (3)
  - CYANOSIS [None]
  - DYSPHAGIA [None]
  - EPILEPSY [None]
